FAERS Safety Report 9123649 (Version 2)
Quarter: 2013Q3

REPORT INFORMATION
  Report Type: Spontaneous
  Country: CA (occurrence: CA)
  Receive Date: 20130227
  Receipt Date: 20130702
  Transmission Date: 20140515
  Serious: Yes (Death)
  Sender: FDA-Public Use
  Company Number: CA-BAYER-2013-021625

PATIENT
  Age: 18 Year
  Sex: Female

DRUGS (2)
  1. YASMIN 28 [Suspect]
     Indication: CONTRACEPTION
     Route: 065
  2. CONCERTA [Suspect]
     Indication: ATTENTION DEFICIT/HYPERACTIVITY DISORDER
     Route: 048

REACTIONS (1)
  - Cerebral venous thrombosis [Fatal]
